FAERS Safety Report 5220086-4 (Version None)
Quarter: 2007Q1

REPORT INFORMATION
  Report Type: 
  Country: None (occurrence: None)
  Receive Date: 20070125
  Receipt Date: 20070125
  Transmission Date: 20070707
  Serious: Yes (Other)
  Sender: FDA-Public Use
  Company Number: None

PATIENT
  Age: 52 Year
  Sex: Male
  Weight: 94 kg

DRUGS (9)
  1. IMMUNE GLOBULIN  5 G VIAL  TALECRIS [Suspect]
     Indication: AUTOIMMUNE THROMBOCYTOPENIA
     Dosage: 5 G  DAILY  IV DRIP
     Route: 041
     Dates: start: 20061225, end: 20070101
  2. IMMUNE GLOBULIN  20 G VIAL  TALECRIS [Suspect]
     Indication: AUTOIMMUNE THROMBOCYTOPENIA
     Dosage: 20 G  DAILY  IV DRIP
     Route: 041
     Dates: start: 20061225, end: 20070101
  3. ALBUMIN (HUMAN) [Concomitant]
  4. INSULIN INFUSION [Concomitant]
  5. FUROSEMIDE [Concomitant]
  6. MAGNESIUM SULFATE [Concomitant]
  7. METHYLPREDNISOLONE 16MG TAB [Concomitant]
  8. METOCLOPRAMIDE [Concomitant]
  9. POTASSIUM PHOSPHATES [Concomitant]

REACTIONS (2)
  - CONVULSION [None]
  - LOSS OF CONSCIOUSNESS [None]
